FAERS Safety Report 11922211 (Version 11)
Quarter: 2016Q4

REPORT INFORMATION
  Report Type: Report from Study
  Country: US (occurrence: US)
  Receive Date: 20160115
  Receipt Date: 20161014
  Transmission Date: 20170206
  Serious: Yes (Life-Threatening, Hospitalization, Disabling)
  Sender: FDA-Public Use
  Company Number: US-AMGEN-USACT2016004762

PATIENT
  Age: 14 Year
  Sex: Male
  Weight: 49 kg

DRUGS (36)
  1. CARFILZOMIB [Suspect]
     Active Substance: CARFILZOMIB
     Indication: ACUTE LYMPHOCYTIC LEUKAEMIA
     Dosage: 28 MG, PER CHEMO REGIM
     Route: 042
     Dates: start: 20151217, end: 20160107
  2. TUMS [Concomitant]
     Active Substance: CALCIUM CARBONATE
     Dosage: 500 MG, UNK
     Route: 048
     Dates: start: 20151215
  3. FENTANYL. [Concomitant]
     Active Substance: FENTANYL
     Dosage: 50-100 MG, UNK
     Route: 042
     Dates: start: 20151223, end: 20160116
  4. HEPARIN [Concomitant]
     Active Substance: HEPARIN SODIUM
     Dosage: 30-100, UNK
     Route: 042
     Dates: start: 20151214, end: 20160123
  5. DEXAMETHASONE. [Suspect]
     Active Substance: DEXAMETHASONE
     Indication: ACUTE LYMPHOCYTIC LEUKAEMIA
     Dosage: 10 MG/M2, BID 4.2-28 MG UNK
     Route: 042
     Dates: start: 20151217, end: 20160110
  6. VINCRISTINE [Suspect]
     Active Substance: VINCRISTINE
     Indication: ACUTE LYMPHOCYTIC LEUKAEMIA
     Dosage: 2 MG, ONE TIME DOSE
     Route: 042
     Dates: start: 20151225, end: 20160115
  7. MAGNESIUM SULFATE. [Concomitant]
     Active Substance: MAGNESIUM SULFATE
     Dosage: 1000-2000 MG, UNK
     Route: 042
     Dates: start: 20151216, end: 20160108
  8. BACTRIM [Concomitant]
     Active Substance: SULFAMETHOXAZOLE\TRIMETHOPRIM
     Dosage: 160 MG, UNK
     Route: 048
     Dates: start: 20151219, end: 20160109
  9. ROPIVACAINE [Concomitant]
     Active Substance: ROPIVACAINE
     Dosage: 1-10 ML, UNK
     Route: 042
     Dates: start: 20151223, end: 20160120
  10. ACETAMINOPHEN. [Concomitant]
     Active Substance: ACETAMINOPHEN
     Dosage: 350-610 MG, UNK
     Route: 048
     Dates: start: 20151214, end: 20160123
  11. SODIUM CHLORIDE. [Concomitant]
     Active Substance: SODIUM CHLORIDE
     Dosage: 2 TO 920 ML, UNK
     Dates: start: 20151214, end: 20160301
  12. OXYMETAZOLINE [Concomitant]
     Active Substance: OXYMETAZOLINE
     Dosage: 2 UNK, UNK
     Route: 045
     Dates: start: 20151220, end: 20151221
  13. PROPOFOL. [Concomitant]
     Active Substance: PROPOFOL
     Dosage: 20 TO 250 MG, UNK
     Route: 042
     Dates: start: 20151216, end: 20160201
  14. DIPHENHYDRAMINE. [Concomitant]
     Active Substance: DIPHENHYDRAMINE
     Dosage: 25 MG, UNK
     Route: 042
     Dates: start: 20151214, end: 20160315
  15. CYTARABINE. [Concomitant]
     Active Substance: CYTARABINE
     Indication: ACUTE LYMPHOCYTIC LEUKAEMIA
     Dosage: 30 MG, ONE TIME DOSE
     Route: 037
     Dates: start: 20130408, end: 20151223
  16. VANCOMYCIN [Concomitant]
     Active Substance: VANCOMYCIN
     Dosage: 700 TO 1000 MG, QID
     Route: 042
     Dates: start: 20151216, end: 20160128
  17. MELATONIN [Concomitant]
     Active Substance: MELATONIN
     Dosage: 6 MG, UNK
     Route: 048
     Dates: start: 20151214, end: 20160110
  18. ERWINIA [Suspect]
     Active Substance: ASPARAGINASE ERWINIA CHRYSANTHEMI
     Indication: ACUTE LYMPHOCYTIC LEUKAEMIA
     Dosage: 18000 UNIT, ONE TIME DOSE
     Route: 030
     Dates: start: 20151225, end: 20160106
  19. MEGESTROL [Concomitant]
     Active Substance: MEGESTROL
     Dosage: 120 MG, UNK
     Route: 048
     Dates: start: 20151219, end: 20160108
  20. VORICONAZOLE. [Concomitant]
     Active Substance: VORICONAZOLE
     Dosage: 275 MG, UNK
     Route: 048
     Dates: start: 20151214, end: 20151215
  21. ZINECARD [Concomitant]
     Active Substance: DEXRAZOXANE HYDROCHLORIDE
     Dosage: 560 MG, UNK
     Route: 042
     Dates: start: 20151223, end: 20151224
  22. CLARITHROMYCIN. [Concomitant]
     Active Substance: CLARITHROMYCIN
     Dosage: 7.6 ML, UNK
     Dates: start: 20151223, end: 20151223
  23. MITOXANTRONE [Suspect]
     Active Substance: MITOXANTRONE HYDROCHLORIDE
     Indication: PRODUCT USED FOR UNKNOWN INDICATION
     Dosage: 14 MG, UNK
     Route: 065
     Dates: start: 20151223, end: 20151224
  24. METHOTREXATE. [Concomitant]
     Active Substance: METHOTREXATE
     Indication: ACUTE LYMPHOCYTIC LEUKAEMIA
     Dosage: 7.6 ML -15 MG, ONE TIME DOSE
     Route: 037
     Dates: start: 20130302, end: 20151230
  25. SYNERA [Concomitant]
     Active Substance: LIDOCAINE\TETRACAINE
     Dosage: 1 UNK, UNK
     Route: 061
     Dates: start: 20151214
  26. ONDANSETRON [Concomitant]
     Active Substance: ONDANSETRON
     Dosage: 4-16 MG, UNK
     Route: 048
     Dates: start: 20151214, end: 20160112
  27. ALTEPLASE [Concomitant]
     Active Substance: ALTEPLASE
     Dosage: 2 MG, UNK
     Route: 042
     Dates: start: 20151214, end: 20160201
  28. MICAFUNGIN [Concomitant]
     Active Substance: MICAFUNGIN
     Indication: INFECTION PROPHYLAXIS
     Dosage: 50 MG, QD
     Route: 042
     Dates: start: 20151216, end: 20160116
  29. MIDAZOLAM [Concomitant]
     Active Substance: MIDAZOLAM\MIDAZOLAM HYDROCHLORIDE
     Dosage: 0.1 TO 5 UNK, UNK
     Route: 042
     Dates: start: 20151216, end: 20160109
  30. RANITIDINE. [Concomitant]
     Active Substance: RANITIDINE
     Dosage: 50-75 MG, UNK
     Route: 048
     Dates: start: 20151214, end: 20160110
  31. ALLOPURINOL. [Concomitant]
     Active Substance: ALLOPURINOL
     Dosage: 300 MG, UNK
     Route: 048
     Dates: start: 20151214, end: 20151227
  32. AMOXICILLIN. [Concomitant]
     Active Substance: AMOXICILLIN
     Dosage: 7.6 ML, UNK
     Dates: start: 20151223, end: 20151223
  33. CEFEPIME [Concomitant]
     Active Substance: CEFEPIME HYDROCHLORIDE
     Indication: INFECTION PROPHYLAXIS
     Dosage: 2000 MG, QID
     Route: 042
     Dates: start: 20151214, end: 20160108
  34. MEROPENEM. [Concomitant]
     Active Substance: MEROPENEM
     Dosage: 900-1000 MG
     Route: 042
     Dates: start: 20151216, end: 20160123
  35. POLYETHYLENE GLYCOL [Concomitant]
     Active Substance: POLYETHYLENE GLYCOLS
     Dosage: 17 G, UNK
     Route: 050
     Dates: start: 20151214, end: 20160125
  36. LORAZEPAM. [Concomitant]
     Active Substance: LORAZEPAM
     Dosage: 0.5 TO 4.88 MG, UNK
     Route: 042
     Dates: start: 20151223, end: 20160113

REACTIONS (4)
  - Hydrocephalus [Not Recovered/Not Resolved]
  - Sepsis [Recovered/Resolved]
  - Encephalitis [Recovered/Resolved]
  - Brain oedema [Not Recovered/Not Resolved]

NARRATIVE: CASE EVENT DATE: 20160108
